FAERS Safety Report 23137722 (Version 3)
Quarter: 2023Q4

REPORT INFORMATION
  Report Type: Spontaneous
  Country: US (occurrence: US)
  Receive Date: 20231102
  Receipt Date: 20231230
  Transmission Date: 20240109
  Serious: No
  Sender: FDA-Public Use
  Company Number: US-GSKCCFUS-Case-01838713_AE-102792

PATIENT
  Sex: Male

DRUGS (1)
  1. TRELEGY ELLIPTA [Suspect]
     Active Substance: FLUTICASONE FUROATE\UMECLIDINIUM BROMIDE\VILANTEROL TRIFENATATE
     Indication: Chronic obstructive pulmonary disease
     Dosage: UNK,200/62.5/25MCG
     Route: 055

REACTIONS (6)
  - Flushing [Unknown]
  - Exposure via skin contact [Unknown]
  - Wrong technique in device usage process [Unknown]
  - Accidental exposure to product [Unknown]
  - Product use issue [Unknown]
  - Product complaint [Unknown]
